FAERS Safety Report 6447139-7 (Version None)
Quarter: 2009Q4

REPORT INFORMATION
  Report Type: 
  Country: None (occurrence: None)
  Receive Date: 20091119
  Receipt Date: 20091116
  Transmission Date: 20100525
  Serious: Yes (Death)
  Sender: FDA-Public Use
  Company Number: JP-ASTRAZENECA-2008AP05559

PATIENT
  Age: 83 Year
  Sex: Male
  Weight: 56 kg

DRUGS (15)
  1. IRESSA [Suspect]
     Indication: NON-SMALL CELL LUNG CANCER
     Route: 048
     Dates: start: 20080704, end: 20080714
  2. LOXONIN [Concomitant]
     Route: 048
     Dates: start: 20080502
  3. MUCOSTA [Concomitant]
     Route: 048
     Dates: start: 20080502
  4. PURSENNID [Concomitant]
     Dosage: DOSE UNKNOWN, AS REQUIRED.
     Route: 048
     Dates: start: 20080514
  5. VOLTAREN [Concomitant]
     Route: 054
     Dates: start: 20080603
  6. HYPEN [Concomitant]
     Route: 048
     Dates: start: 20080604
  7. CYTOTEC [Concomitant]
     Route: 048
     Dates: start: 20080604
  8. CALONAL [Concomitant]
     Route: 048
     Dates: start: 20080604
  9. MAGNESIUM OXIDE [Concomitant]
     Route: 048
     Dates: start: 20080606
  10. CODEINE PHOSPHATE [Concomitant]
     Route: 048
     Dates: start: 20080612
  11. NOVAMIN [Concomitant]
     Route: 048
     Dates: start: 20080612
  12. OXYCONTIN [Concomitant]
     Dosage: 5 MG, 2-3 TIMES/DAY
     Route: 048
     Dates: start: 20080623
  13. OXINORM [Concomitant]
     Route: 048
     Dates: start: 20080623
  14. RISPERDAL [Concomitant]
     Route: 048
     Dates: start: 20080623
  15. MUCODYNE [Concomitant]
     Route: 048
     Dates: start: 20080629

REACTIONS (1)
  - LUNG DISORDER [None]
